FAERS Safety Report 13815339 (Version 1)
Quarter: 2017Q3

REPORT INFORMATION
  Report Type: Spontaneous
  Country: US (occurrence: US)
  Receive Date: 20170729
  Receipt Date: 20170729
  Transmission Date: 20171127
  Serious: Yes (Hospitalization, Disabling)
  Sender: FDA-Public Use
  Company Number: None

PATIENT
  Age: 47 Year
  Sex: Male
  Weight: 67.5 kg

DRUGS (4)
  1. ZANTAC [Concomitant]
     Active Substance: RANITIDINE HYDROCHLORIDE
  2. OXYMORPHONE [Suspect]
     Active Substance: OXYMORPHONE
     Indication: INJURY
     Dosage: ?          QUANTITY:90 TABLET(S);?EVERY 8 HOURS ORAL
     Route: 048
     Dates: start: 20120718, end: 20170712
  3. OXYMORPHONE [Suspect]
     Active Substance: OXYMORPHONE
     Indication: BACK INJURY
     Dosage: ?          QUANTITY:90 TABLET(S);?EVERY 8 HOURS ORAL
     Route: 048
     Dates: start: 20120718, end: 20170712
  4. ADVIL [Concomitant]
     Active Substance: IBUPROFEN

REACTIONS (1)
  - Drug dependence [None]

NARRATIVE: CASE EVENT DATE: 20170712
